FAERS Safety Report 7608470-2 (Version None)
Quarter: 2011Q3

REPORT INFORMATION
  Report Type: 
  Country: None (occurrence: None)
  Receive Date: 20110714
  Receipt Date: 20110705
  Transmission Date: 20111222
  Serious: Yes (Life-Threatening, Hospitalization, Other)
  Sender: FDA-Public Use
  Company Number: US-BAYER-201026820NA

PATIENT
  Age: 25 Year
  Sex: Female
  Weight: 77.098 kg

DRUGS (4)
  1. YASMIN [Suspect]
     Indication: CONTRACEPTION
     Dosage: UNK
     Route: 048
     Dates: start: 20030101, end: 20080101
  2. VITAMIN B-12 [Concomitant]
  3. LASIX [Concomitant]
     Dosage: UNK UNK, BID
  4. YAZ [Suspect]
     Indication: CONTRACEPTION
     Dosage: UNK UNK, QD
     Route: 048
     Dates: start: 20030101, end: 20080101

REACTIONS (7)
  - CHOLECYSTITIS CHRONIC [None]
  - BILE DUCT STONE [None]
  - INJURY [None]
  - GALLBLADDER NON-FUNCTIONING [None]
  - PERITONEAL ADHESIONS [None]
  - CHOLELITHIASIS [None]
  - CHOLANGITIS ACUTE [None]
